FAERS Safety Report 4553776-7 (Version None)
Quarter: 2005Q1

REPORT INFORMATION
  Report Type: 
  Country: None (occurrence: None)
  Receive Date: 20050112
  Receipt Date: 20050112
  Transmission Date: 20050727
  Serious: No
  Sender: FDA-Public Use
  Company Number: None

PATIENT
  Age: 66 Year
  Sex: Female
  Weight: 65.318 kg

DRUGS (3)
  1. AMIODARONE [Suspect]
     Indication: ARRHYTHMIA
     Dosage: 200 MG QD
     Dates: start: 19990601, end: 20030201
  2. AMIODARONE [Suspect]
     Indication: ATRIAL FIBRILLATION
     Dosage: 200 MG QD
     Dates: start: 19990601, end: 20030201
  3. ALLOPURINOL [Concomitant]

REACTIONS (5)
  - DRUG INTERACTION [None]
  - HEPATIC CIRRHOSIS [None]
  - HEPATOMEGALY [None]
  - LUNG DISORDER [None]
  - OEDEMA [None]
